FAERS Safety Report 7283502-2 (Version None)
Quarter: 2011Q1

REPORT INFORMATION
  Report Type: 
  Country: None (occurrence: None)
  Receive Date: 20110125
  Receipt Date: 20110103
  Transmission Date: 20110831
  Serious: Yes (Life-Threatening)
  Sender: FDA-Public Use
  Company Number: 54973

PATIENT
  Age: 4 Month
  Sex: Female
  Weight: 8.1647 kg

DRUGS (1)
  1. HYLAND'S TEETHING GEL [Suspect]
     Indication: TEETHING
     Dosage: 1 DOSE EVRY 4HRS X 3DYS

REACTIONS (4)
  - APNOEIC ATTACK [None]
  - URINE OUTPUT DECREASED [None]
  - HYPERSOMNIA [None]
  - HYPOPHAGIA [None]
